FAERS Safety Report 13381685 (Version 2)
Quarter: 2018Q1

REPORT INFORMATION
  Report Type: Report from Study
  Country: US (occurrence: US)
  Receive Date: 20170329
  Receipt Date: 20180304
  Transmission Date: 20180508
  Serious: No
  Sender: FDA-Public Use
  Company Number: PHEH2017US009057

PATIENT
  Age: 6 Year
  Sex: Female

DRUGS (1)
  1. ILARIS [Suspect]
     Active Substance: CANAKINUMAB
     Indication: STILL^S DISEASE
     Dosage: 200 MG, Q4W
     Route: 058

REACTIONS (2)
  - Oropharyngeal pain [Unknown]
  - Crying [Unknown]

NARRATIVE: CASE EVENT DATE: 20170322
